FAERS Safety Report 5712780-3 (Version None)
Quarter: 2008Q2

REPORT INFORMATION
  Report Type: 
  Country: None (occurrence: None)
  Receive Date: 20080421
  Receipt Date: 20080421
  Transmission Date: 20081010
  Serious: Yes (Other)
  Sender: FDA-Public Use
  Company Number: None

PATIENT
  Age: 64 Year
  Sex: Male
  Weight: 70.3075 kg

DRUGS (2)
  1. LUPRON DEPOT [Suspect]
     Indication: PROSTATE CANCER
     Dosage: 22.5 MG EVERY 84 DAYS IM
     Route: 030
     Dates: start: 20071127, end: 20071127
  2. CASODEX [Concomitant]

REACTIONS (5)
  - BLOOD TESTOSTERONE INCREASED [None]
  - DRUG INEFFECTIVE [None]
  - HOT FLUSH [None]
  - PHARMACEUTICAL PRODUCT COUNTERFEIT [None]
  - POOR QUALITY DRUG ADMINISTERED [None]
